FAERS Safety Report 17954253 (Version 1)
Quarter: 2020Q2

REPORT INFORMATION
  Report Type: Report from Study
  Country: DE (occurrence: DE)
  Receive Date: 20200629
  Receipt Date: 20200629
  Transmission Date: 20200714
  Serious: Yes (Other)
  Sender: FDA-Public Use
  Company Number: DE-BIOGEN-2020BI00891482

PATIENT
  Age: 59 Year
  Sex: Male

DRUGS (2)
  1. SPINRAZA [Suspect]
     Active Substance: NUSINERSEN
     Indication: SPINAL MUSCULAR ATROPHY
     Route: 037
     Dates: start: 20190527
  2. RAMIPRIL. [Suspect]
     Active Substance: RAMIPRIL
     Indication: BLOOD PRESSURE INCREASED
     Route: 065
     Dates: start: 202003, end: 202003

REACTIONS (2)
  - Fatigue [Recovered/Resolved]
  - Blood pressure increased [Not Recovered/Not Resolved]

NARRATIVE: CASE EVENT DATE: 202003
